FAERS Safety Report 13088959 (Version 2)
Quarter: 2020Q3

REPORT INFORMATION
  Report Type: Spontaneous
  Country: AU (occurrence: AU)
  Receive Date: 20170105
  Receipt Date: 20200717
  Transmission Date: 20201102
  Serious: Yes (Life-Threatening, Hospitalization, Other)
  Sender: FDA-Public Use
  Company Number: AU-PFIZER INC-2016604538

PATIENT
  Age: 43 Year
  Sex: Male

DRUGS (1)
  1. METHOTREXATE SODIUM. [Suspect]
     Active Substance: METHOTREXATE SODIUM
     Indication: PSORIASIS
     Dosage: 10 MG, 3X/DAY
     Route: 048

REACTIONS (6)
  - Photosensitivity reaction [Unknown]
  - Stomatitis [Unknown]
  - Product prescribing error [Unknown]
  - Gastrointestinal inflammation [Unknown]
  - Staphylococcal infection [Unknown]
  - Febrile neutropenia [Unknown]
